FAERS Safety Report 9638234 (Version 1)
Quarter: 2013Q4

REPORT INFORMATION
  Report Type: Spontaneous
  Country: US (occurrence: None)
  Receive Date: 20131021
  Receipt Date: 20131021
  Transmission Date: 20140711
  Serious: Yes (Life-Threatening, Hospitalization)
  Sender: FDA-Public Use
  Company Number: None

PATIENT
  Age: 11 Year
  Sex: Female
  Weight: 32 kg

DRUGS (1)
  1. ONCASPAR [Suspect]

REACTIONS (4)
  - Pharyngeal oedema [None]
  - Nausea [None]
  - Vomiting [None]
  - Mental status changes [None]
